FAERS Safety Report 5585253-9 (Version None)
Quarter: 2008Q1

REPORT INFORMATION
  Report Type: 
  Country: None (occurrence: None)
  Receive Date: 20080108
  Receipt Date: 20080108
  Transmission Date: 20080703
  Serious: No
  Sender: FDA-Public Use
  Company Number: None

PATIENT
  Age: 41 Year
  Sex: Female

DRUGS (3)
  1. DEPAKOTE ER [Suspect]
     Dosage: 250 MG BID
     Dates: start: 20060601, end: 20060820
  2. TEMODAR [Concomitant]
  3. MULTI-VITAMIN [Concomitant]

REACTIONS (7)
  - ANOREXIA [None]
  - ARTHRALGIA [None]
  - FATIGUE [None]
  - LIVER INJURY [None]
  - MYALGIA [None]
  - NAUSEA [None]
  - TRANSAMINASES INCREASED [None]
